FAERS Safety Report 19271669 (Version 2)
Quarter: 2021Q2

REPORT INFORMATION
  Report Type: Spontaneous
  Country: JP (occurrence: JP)
  Receive Date: 20210519
  Receipt Date: 20210528
  Transmission Date: 20210717
  Serious: Yes (Hospitalization, Other)
  Sender: FDA-Public Use
  Company Number: JP-CELLTRION INC.-2021JP006617

PATIENT

DRUGS (1)
  1. TRASTUZUMAB BS FOR I.V. INFUSION ?CTH? [Suspect]
     Active Substance: TRASTUZUMAB
     Indication: BREAST CANCER
     Dosage: UNK
     Route: 041
     Dates: start: 202102

REACTIONS (3)
  - Contraindicated product administered [Unknown]
  - Musculoskeletal disorder [Unknown]
  - Cardiac dysfunction [Unknown]
